FAERS Safety Report 4649947-1 (Version None)
Quarter: 2005Q2

REPORT INFORMATION
  Report Type: 
  Country: None (occurrence: None)
  Receive Date: 20050428
  Receipt Date: 20050419
  Transmission Date: 20051028
  Serious: Yes (Life-Threatening, Hospitalization)
  Sender: FDA-Public Use
  Company Number: 2005-04-1376

PATIENT
  Age: 53 Year
  Sex: Female
  Weight: 60 kg

DRUGS (1)
  1. DIPROSPAN (BETAMETHASONE SODIUM PHOSPHATE/DIPROPIONA INJECTABLE SUSPEN [Suspect]
     Indication: BACK PAIN
     Dosage: 1 ML INTRAMUSCULAR
     Route: 030
     Dates: start: 20050316, end: 20050316

REACTIONS (3)
  - ARRHYTHMIA [None]
  - CHEST PAIN [None]
  - HEADACHE [None]
